FAERS Safety Report 6174841-7 (Version None)
Quarter: 2009Q2

REPORT INFORMATION
  Report Type: 
  Country: None (occurrence: None)
  Receive Date: 20090430
  Receipt Date: 20090105
  Transmission Date: 20091009
  Serious: Yes (Other)
  Sender: FDA-Public Use
  Company Number: US-ASTRAZENECA-2008UW26362

PATIENT
  Age: 10 Year
  Sex: Male
  Weight: 43.5 kg

DRUGS (2)
  1. NEXIUM [Suspect]
     Indication: REFLUX OESOPHAGITIS
     Route: 048
     Dates: end: 20080101
  2. NEXIUM [Suspect]
     Route: 048
     Dates: start: 20080801, end: 20080101

REACTIONS (2)
  - EPISTAXIS [None]
  - VISUAL FIELD DEFECT [None]
